FAERS Safety Report 6349862-1 (Version None)
Quarter: 2009Q3

REPORT INFORMATION
  Report Type: 
  Country: None (occurrence: None)
  Receive Date: 20090911
  Receipt Date: 20090903
  Transmission Date: 20100115
  Serious: Yes (Hospitalization, Other)
  Sender: FDA-Public Use
  Company Number: US-ELI_LILLY_AND_COMPANY-US200709006561

PATIENT
  Sex: Female
  Weight: 48.073 kg

DRUGS (13)
  1. FORTEO [Suspect]
     Indication: OSTEOPOROSIS
     Dosage: 20 UG, DAILY (1/D)
     Dates: start: 20070814, end: 20070901
  2. FORTEO [Suspect]
     Dosage: 20 UG, DAILY (1/D)
     Dates: start: 20070925
  3. FORTEO [Suspect]
     Dosage: 20 UG, DAILY (1/D)
  4. FORTEO [Suspect]
     Dosage: 20 UG, DAILY (1/D)
  5. FORTEO [Suspect]
     Dosage: UNKNOWN
  6. FORTEO [Suspect]
     Dosage: 20 UG, DAILY (1/D)
  7. FORTEO [Suspect]
     Dosage: 20 UG, DAILY (1/D)
     Dates: end: 20070101
  8. VITAMINS NOS [Concomitant]
  9. ASPIRIN [Concomitant]
     Dosage: 80 MG, UNK
  10. XANAX [Concomitant]
  11. VITAMIN D [Concomitant]
  12. LIPITOR [Concomitant]
  13. CALCIUM [Concomitant]

REACTIONS (10)
  - ANXIETY [None]
  - BALANCE DISORDER [None]
  - BODY HEIGHT DECREASED [None]
  - CONFUSIONAL STATE [None]
  - COORDINATION ABNORMAL [None]
  - DRUG INEFFECTIVE [None]
  - FALL [None]
  - INJECTION SITE HAEMORRHAGE [None]
  - PELVIC FRACTURE [None]
  - WEIGHT DECREASED [None]
